FAERS Safety Report 22880728 (Version 3)
Quarter: 2023Q4

REPORT INFORMATION
  Report Type: Report from Study
  Country: CN (occurrence: CN)
  Receive Date: 20230830
  Receipt Date: 20231107
  Transmission Date: 20240110
  Serious: Yes (Other)
  Sender: FDA-Public Use
  Company Number: CN-ABBVIE-5386579

PATIENT
  Age: 16 Year
  Sex: Male
  Weight: 49 kg

DRUGS (10)
  1. HUMIRA [Suspect]
     Active Substance: ADALIMUMAB
     Indication: Juvenile idiopathic arthritis
     Dosage: FORM STRENGTH- 40 MILLIGRAM
     Route: 058
     Dates: start: 20230503, end: 20231015
  2. HUMIRA [Suspect]
     Active Substance: ADALIMUMAB
     Indication: Juvenile idiopathic arthritis
  3. METHOTREXATE [Concomitant]
     Active Substance: METHOTREXATE
     Indication: Juvenile idiopathic arthritis
     Dosage: TABLETS
     Route: 048
     Dates: start: 20230502
  4. CELECOXIB [Concomitant]
     Active Substance: CELECOXIB
     Indication: Product used for unknown indication
  5. CALCIUM CARBONATE [Concomitant]
     Active Substance: CALCIUM CARBONATE
     Indication: Juvenile idiopathic arthritis
     Dosage: 500 MILLIGRAM?D3 TABLETS
     Route: 048
     Dates: start: 20230502
  6. CEFIXIME [Concomitant]
     Active Substance: CEFIXIME
     Indication: Product used for unknown indication
  7. FOLIC ACID [Concomitant]
     Active Substance: FOLIC ACID
     Indication: Juvenile idiopathic arthritis
     Dosage: TABLET
     Route: 048
     Dates: start: 20230502
  8. NAPROXEN [Concomitant]
     Active Substance: NAPROXEN
     Indication: Juvenile idiopathic arthritis
     Dosage: 200 MILLIGRAM
     Route: 048
     Dates: start: 20230706
  9. NAPROXEN [Concomitant]
     Active Substance: NAPROXEN
     Indication: Juvenile idiopathic arthritis
     Dosage: 400 MILLIGRAM
     Route: 048
     Dates: start: 20230504, end: 20230705
  10. NAPROXEN [Concomitant]
     Active Substance: NAPROXEN
     Indication: Juvenile idiopathic arthritis
     Dosage: TIME INTERVAL: 0.33333333 DAYS: 600 MILLIGRAM?TABLETS
     Route: 048
     Dates: start: 20230502, end: 20230503

REACTIONS (1)
  - Renal failure [Recovered/Resolved]

NARRATIVE: CASE EVENT DATE: 20230601
